FAERS Safety Report 5320909-4 (Version None)
Quarter: 2007Q2

REPORT INFORMATION
  Report Type: 
  Country: None (occurrence: None)
  Receive Date: 20070504
  Receipt Date: 20070423
  Transmission Date: 20071010
  Serious: Yes (Other)
  Sender: FDA-Public Use
  Company Number: 2007-00421

PATIENT
  Age: 73 Year
  Sex: Male
  Weight: 63 kg

DRUGS (3)
  1. VELCADE [Suspect]
     Indication: PLASMACYTOMA
     Dosage: 2.30 MG
     Dates: start: 20060214, end: 20060710
  2. DURAGESIC-100 [Concomitant]
  3. LOPERAMIDE HYDROCHLORIDE [Concomitant]

REACTIONS (1)
  - DIARRHOEA [None]
